FAERS Safety Report 5875672-5 (Version None)
Quarter: 2008Q3

REPORT INFORMATION
  Report Type: 
  Country: None (occurrence: None)
  Receive Date: 20080909
  Receipt Date: 20080904
  Transmission Date: 20090109
  Serious: Yes (Hospitalization)
  Sender: FDA-Public Use
  Company Number: IT-ABBOTT-08P-083-0474398-00

PATIENT
  Age: 62 Year
  Sex: Male

DRUGS (5)
  1. HUMIRA [Suspect]
     Indication: PARAPSORIASIS
     Route: 058
     Dates: start: 20080801, end: 20080805
  2. GILBOMET [Concomitant]
     Indication: DRUG USE FOR UNKNOWN INDICATION
  3. HYZAAR [Concomitant]
     Indication: DRUG USE FOR UNKNOWN INDICATION
  4. ATENOLOL [Concomitant]
     Indication: DRUG USE FOR UNKNOWN INDICATION
  5. ASPIRIN [Concomitant]
     Indication: DRUG USE FOR UNKNOWN INDICATION

REACTIONS (1)
  - ERYTHRODERMIC PSORIASIS [None]
